FAERS Safety Report 7747735 (Version 2)
Quarter: 2013Q1

REPORT INFORMATION
  Report Type: Spontaneous
  Country: JP (occurrence: JP)
  Receive Date: 20110104
  Receipt Date: 20130204
  Transmission Date: 20140127
  Serious: Yes (Life-Threatening, Hospitalization)
  Sender: FDA-Public Use
  Company Number: GXKR2010JP12544

PATIENT
  Age: 72 Year
  Sex: Male
  Weight: 59 kg

DRUGS (19)
  1. CEFTRIAXONE SODIUM [Suspect]
     Dosage: 4 G, UNK
     Route: 042
  2. CEFTRIAXONE SODIUM [Suspect]
     Dosage: 1 G, UNK
     Dates: start: 20101019, end: 20101109
  3. CEFTRIAXONE SODIUM [Suspect]
     Dosage: 2 G, UNK
     Dates: start: 20101021, end: 20101109
  4. CEFTRIAXONE SODIUM [Suspect]
     Dosage: 1 G, UNK
  5. OMEPRAZOLE [Concomitant]
     Route: 048
     Dates: start: 20100930
  6. D ALFA [Concomitant]
     Route: 048
     Dates: start: 20100930
  7. ASPIRIN [Concomitant]
     Route: 048
     Dates: start: 20100930
  8. ROMIKACIN [Concomitant]
     Dosage: 200 MG, UNK
     Dates: start: 20101022, end: 20101022
  9. ROMIKACIN [Concomitant]
  10. ADALAT CR [Concomitant]
     Route: 048
     Dates: start: 20100930
  11. ADALAT CR [Concomitant]
  12. CALTAN [Concomitant]
     Route: 048
     Dates: start: 20100930
  13. NU-LOTAN [Concomitant]
     Route: 048
     Dates: start: 20100930
  14. CADEMESIN [Concomitant]
     Dates: start: 20100930
  15. ALEROFF [Concomitant]
     Route: 048
     Dates: start: 20100930
  16. SENNOSIDE [Concomitant]
     Route: 048
     Dates: start: 20100930
  17. SOLDEM [Concomitant]
     Dates: start: 20101020, end: 20101024
  18. URSODEOXYCHOLIC ACID [Concomitant]
     Route: 048
     Dates: start: 20101007
  19. SUBVITAN [Concomitant]
     Dates: start: 20101021, end: 20101024

REACTIONS (5)
  - Coma [Recovering/Resolving]
  - Altered state of consciousness [Recovering/Resolving]
  - Feeling abnormal [Recovering/Resolving]
  - Overdose [Recovering/Resolving]
  - Pyrexia [Unknown]
